FAERS Safety Report 4966507-3 (Version None)
Quarter: 2006Q2

REPORT INFORMATION
  Report Type: 
  Country: None (occurrence: None)
  Receive Date: 20060407
  Receipt Date: 20060329
  Transmission Date: 20061013
  Serious: Yes (Death)
  Sender: FDA-Public Use
  Company Number: US-JNJFOC-20050906235

PATIENT
  Sex: Female
  Weight: 82.1 kg

DRUGS (2)
  1. EXTRA STRENGTH TYLENOL [Suspect]
     Indication: INSOMNIA
     Dosage: 2-6 DAILY AT NIGHT WITH ALCOHOL
  2. ALCOHOL [Suspect]
     Indication: DRUG USE FOR UNKNOWN INDICATION

REACTIONS (6)
  - ALCOHOL POISONING [None]
  - COMPLETED SUICIDE [None]
  - DRUG TOLERANCE INCREASED [None]
  - HYPERTENSIVE HEART DISEASE [None]
  - INTENTIONAL DRUG MISUSE [None]
  - INTENTIONAL OVERDOSE [None]
